FAERS Safety Report 6477473-6 (Version None)
Quarter: 2009Q4

REPORT INFORMATION
  Report Type: 
  Country: None (occurrence: None)
  Receive Date: 20091207
  Receipt Date: 20091118
  Transmission Date: 20100525
  Serious: Yes (Other)
  Sender: FDA-Public Use
  Company Number: BR-SANOFI-AVENTIS-2009SA003731

PATIENT
  Age: 60 Year
  Sex: Female

DRUGS (5)
  1. LANTUS [Suspect]
     Route: 058
  2. AUTOPEN 24 [Suspect]
  3. NOVORAPID [Concomitant]
     Route: 058
  4. ALL OTHER THERAPEUTIC PRODUCTS [Concomitant]
  5. AAS [Concomitant]
     Route: 048

REACTIONS (4)
  - HYPERGLYCAEMIA [None]
  - INCORRECT STORAGE OF DRUG [None]
  - INFARCTION [None]
  - MEDICATION ERROR [None]
